FAERS Safety Report 6905888-8 (Version None)
Quarter: 2010Q3

REPORT INFORMATION
  Report Type: 
  Country: None (occurrence: None)
  Receive Date: 20100804
  Receipt Date: 20100729
  Transmission Date: 20110219
  Serious: Yes (Death)
  Sender: FDA-Public Use
  Company Number: US-ROCHE-718171

PATIENT
  Sex: Male
  Weight: 104.7 kg

DRUGS (21)
  1. BEVACIZUMAB [Suspect]
     Dosage: DOSING AMMOUNT:1565.0000
     Route: 042
     Dates: start: 20100714
  2. PEMETREXED [Suspect]
     Dosage: DOSING AMOUNT: 1095
     Route: 042
     Dates: start: 20100714
  3. LOVASTATIN [Concomitant]
     Route: 048
     Dates: start: 20040501
  4. DOXAZOSIN [Concomitant]
     Dosage: FREQUENCY: 3 TAB BEDTIME.
     Route: 048
     Dates: start: 20080601
  5. CLONAZEPAM [Concomitant]
     Indication: ANXIOLYTIC THERAPY
     Dosage: FREQUENCY: BEDTIME.
     Route: 048
     Dates: start: 20100601
  6. ASPIRIN [Concomitant]
     Indication: ANTICOAGULANT THERAPY
     Route: 048
     Dates: start: 19900101
  7. INDAPAMIDE [Concomitant]
     Indication: HYPERTENSION
     Route: 048
     Dates: start: 19900101
  8. XODOL [Concomitant]
     Dosage: DOSING AMOUNT: 10 MG-300 MG, DATE: 6/28
     Route: 048
  9. DECADRON [Concomitant]
     Route: 048
     Dates: start: 20100713
  10. COMPAZINE [Concomitant]
     Indication: NAUSEA
     Dosage: FREQUENCY: PRN-24-6
     Route: 048
     Dates: start: 20100713
  11. FOLIC ACID [Concomitant]
     Dosage: INDICATION: SUPP.
     Route: 048
     Dates: start: 20100709
  12. OXYCONTIN [Concomitant]
     Indication: PAIN
     Dosage: FREQUENCY: PRN Q/2.
     Route: 048
     Dates: start: 20100709
  13. OXYCONTIN [Concomitant]
     Dosage: FREQUENCY: PRN Q4.
     Route: 048
     Dates: start: 20100709
  14. REQUIP [Concomitant]
     Route: 048
     Dates: start: 20100601
  15. LASIX [Concomitant]
     Indication: FLUID RETENTION
     Route: 048
     Dates: start: 19900101
  16. METOPROLOL [Concomitant]
     Route: 048
     Dates: start: 20100101
  17. ALLOPURINOL [Concomitant]
     Indication: GOUT
     Route: 048
     Dates: start: 20000501
  18. AMIODARONE HCL [Concomitant]
     Indication: ARRHYTHMIA
     Route: 048
     Dates: start: 20080801
  19. RANITIDINE [Concomitant]
     Route: 048
  20. PLAVIX [Concomitant]
     Dosage: INDICATION:ANTI COAGULATION
     Route: 048
     Dates: start: 20080801
  21. ZOLPIDEM [Concomitant]
     Route: 048
     Dates: start: 20100418

REACTIONS (1)
  - ACUTE RESPIRATORY DISTRESS SYNDROME [None]
